FAERS Safety Report 9776576 (Version 1)
Quarter: 2013Q4

REPORT INFORMATION
  Report Type: Spontaneous
  Country: US (occurrence: US)
  Receive Date: 20131220
  Receipt Date: 20131220
  Transmission Date: 20140711
  Serious: No
  Sender: FDA-Public Use
  Company Number: US-BIOGENIDEC-2013BI120598

PATIENT
  Age: 58 Year
  Sex: Female

DRUGS (8)
  1. TECFIDERA [Suspect]
     Indication: MULTIPLE SCLEROSIS
     Route: 048
     Dates: start: 20131006
  2. TECFIDERA [Suspect]
     Indication: MULTIPLE SCLEROSIS
     Route: 048
     Dates: start: 20131206
  3. CALCIUM [Concomitant]
  4. VITAMIN D [Concomitant]
  5. CVS FISH OIL [Concomitant]
  6. AMITRIPTYLINE HCL [Concomitant]
  7. LYRICA [Concomitant]
  8. ASPIRIN [Concomitant]

REACTIONS (3)
  - Gastric disorder [Unknown]
  - Prescribed underdose [Unknown]
  - Flushing [Recovered/Resolved]
